FAERS Safety Report 9850295 (Version 2)
Quarter: 2014Q1

REPORT INFORMATION
  Report Type: Spontaneous
  Country: PL (occurrence: PL)
  Receive Date: 20140128
  Receipt Date: 20140211
  Transmission Date: 20141002
  Serious: Yes (Hospitalization)
  Sender: FDA-Public Use
  Company Number: PL-GLAXOSMITHKLINE-B0963736A

PATIENT
  Age: 7 Year
  Sex: Female

DRUGS (1)
  1. ZINNAT [Suspect]
     Indication: ANGINA PECTORIS
     Dosage: 600MG PER DAY
     Route: 065
     Dates: start: 20140101, end: 20140107

REACTIONS (3)
  - Drug administration error [Unknown]
  - Arthralgia [Recovered/Resolved]
  - Arthritis [Unknown]
